FAERS Safety Report 21157234 (Version 2)
Quarter: 2022Q3

REPORT INFORMATION
  Report Type: Report from Study
  Country: DE (occurrence: DE)
  Receive Date: 20220801
  Receipt Date: 20220811
  Transmission Date: 20221027
  Serious: Yes (Other)
  Sender: FDA-Public Use
  Company Number: DE-ABBVIE-22K-062-4478657-00

PATIENT
  Age: 79 Year
  Sex: Male

DRUGS (3)
  1. VENETOCLAX [Suspect]
     Active Substance: VENETOCLAX
     Indication: Acute myeloid leukaemia
     Route: 048
  2. AZACITIDINE [Concomitant]
     Active Substance: AZACITIDINE
     Indication: Product used for unknown indication
     Route: 065
  3. CYTARABINE [Concomitant]
     Active Substance: CYTARABINE
     Indication: Product used for unknown indication
     Route: 065

REACTIONS (17)
  - Cardiac failure [Recovering/Resolving]
  - Hepatic cirrhosis [Unknown]
  - Acute myeloid leukaemia [Unknown]
  - Acute myeloid leukaemia recurrent [Unknown]
  - Cardiopulmonary failure [Unknown]
  - Hepatic steatosis [Unknown]
  - Liver disorder [Unknown]
  - Off label use [Unknown]
  - Renal impairment [Not Recovered/Not Resolved]
  - Laboratory test abnormal [Unknown]
  - Chronic obstructive pulmonary disease [Unknown]
  - Diabetes mellitus [Unknown]
  - Hepatitis [Unknown]
  - Neutropenia [Unknown]
  - Anaemia [Unknown]
  - Blood bilirubin increased [Unknown]
  - Therapeutic response shortened [Unknown]
